FAERS Safety Report 5721239-9 (Version None)
Quarter: 2008Q2

REPORT INFORMATION
  Report Type: 
  Country: None (occurrence: None)
  Receive Date: 20080429
  Receipt Date: 20080423
  Transmission Date: 20081010
  Serious: Yes (Death, Life-Threatening, Hospitalization, Other)
  Sender: FDA-Public Use
  Company Number: DE-ROCHE-558287

PATIENT
  Sex: Female
  Weight: 55 kg

DRUGS (4)
  1. BONIVA [Suspect]
     Indication: OSTEOPOROSIS
     Route: 048
     Dates: start: 20071201, end: 20080301
  2. BELOC-ZOK [Concomitant]
     Indication: HYPERTENSION
     Dates: start: 20020101, end: 20080301
  3. AGGRENOX [Concomitant]
     Indication: CEREBROVASCULAR INSUFFICIENCY
     Dates: start: 20070101, end: 20080301
  4. AGGRENOX [Concomitant]
     Dates: start: 20070101, end: 20080301

REACTIONS (5)
  - ACUTE RESPIRATORY FAILURE [None]
  - PNEUMONIA [None]
  - PULMONARY OEDEMA [None]
  - RIB FRACTURE [None]
  - TRACHEAL INJURY [None]
